FAERS Safety Report 13749045 (Version 1)
Quarter: 2017Q3

REPORT INFORMATION
  Report Type: Spontaneous
  Country: None (occurrence: US)
  Receive Date: 20170713
  Receipt Date: 20170713
  Transmission Date: 20171127
  Serious: Yes (Hospitalization)
  Sender: FDA-Public Use
  Company Number: None

PATIENT
  Age: 56 Year
  Sex: Female
  Weight: 73.1 kg

DRUGS (1)
  1. CISPLATIN. [Suspect]
     Active Substance: CISPLATIN
     Dates: end: 20170705

REACTIONS (4)
  - Oropharyngeal pain [None]
  - Pyrexia [None]
  - Skin reaction [None]
  - Mucosal inflammation [None]

NARRATIVE: CASE EVENT DATE: 20170710
